FAERS Safety Report 10953865 (Version 1)
Quarter: 2015Q1

REPORT INFORMATION
  Report Type: Spontaneous
  Country: US (occurrence: US)
  Receive Date: 20150325
  Receipt Date: 20150325
  Transmission Date: 20150721
  Serious: No
  Sender: FDA-Public Use
  Company Number: US-009507513-1503USA008104

PATIENT
  Sex: Female

DRUGS (1)
  1. NEXPLANON [Suspect]
     Active Substance: ETONOGESTREL
     Dosage: DOSE UNKNOWN, FREQUENCY: 3 YEARS
     Route: 059

REACTIONS (4)
  - Mood altered [Unknown]
  - Dysmenorrhoea [Unknown]
  - Irritability [Unknown]
  - Menorrhagia [Unknown]

NARRATIVE: CASE EVENT DATE: 201412
